FAERS Safety Report 8760775 (Version 1)
Quarter: 2012Q4

REPORT INFORMATION
  Report Type: 
  Country: BE (occurrence: BE)
  Receive Date: 20120830
  Receipt Date: 20120830
  Transmission Date: 20130627
  Serious: Yes (Death, Other)
  Sender: FDA-Public Use
  Company Number: PHHY2012BE074708

PATIENT
  Age: 89 None
  Sex: Female

DRUGS (2)
  1. ACLASTA [Suspect]
     Indication: OSTEOPOROSIS
     Dosage: 5 mg, UNK
     Route: 042
  2. MAREVAN [Concomitant]
     Indication: EMBOLISM

REACTIONS (6)
  - Death [Fatal]
  - Lung neoplasm malignant [Unknown]
  - Pulmonary embolism [Unknown]
  - Cardiac disorder [Unknown]
  - Condition aggravated [Unknown]
  - General physical health deterioration [Unknown]
